FAERS Safety Report 16101034 (Version 2)
Quarter: 2019Q2

REPORT INFORMATION
  Report Type: Spontaneous
  Country: US (occurrence: US)
  Receive Date: 20190321
  Receipt Date: 20190423
  Transmission Date: 20190711
  Serious: No
  Sender: FDA-Public Use
  Company Number: US-BAYER-2019-056628

PATIENT
  Age: 31 Year
  Sex: Female

DRUGS (2)
  1. KYLEENA [Suspect]
     Active Substance: LEVONORGESTREL
     Indication: CONTRACEPTION
     Dosage: 17.5 MCG/24HR, CONT
     Route: 015
     Dates: start: 201810, end: 20190315
  2. CYTOTEC [Concomitant]
     Active Substance: MISOPROSTOL
     Indication: UTERINE SPASM

REACTIONS (7)
  - Device use error [Recovered/Resolved]
  - Anxiety [None]
  - Procedural pain [None]
  - Insomnia [None]
  - Complication of device removal [Recovered/Resolved]
  - Emotional disorder [None]
  - Feeling abnormal [None]

NARRATIVE: CASE EVENT DATE: 201902
